FAERS Safety Report 25204251 (Version 1)
Quarter: 2025Q2

REPORT INFORMATION
  Report Type: Spontaneous
  Country: DE (occurrence: DE)
  Receive Date: 20250416
  Receipt Date: 20250416
  Transmission Date: 20250716
  Serious: Yes (Hospitalization, Other)
  Sender: MYLAN
  Company Number: DE-EMB-M202306317-2

PATIENT
  Sex: Male
  Weight: 3.61 kg

DRUGS (64)
  1. MIRTAZAPINE [Suspect]
     Active Substance: MIRTAZAPINE
     Indication: Sleep disorder
     Dosage: 15 MILLIGRAM, QD
     Dates: start: 202306, end: 202404
  2. MIRTAZAPINE [Suspect]
     Active Substance: MIRTAZAPINE
     Dosage: 15 MILLIGRAM, QD
     Dates: start: 202306, end: 202404
  3. MIRTAZAPINE [Suspect]
     Active Substance: MIRTAZAPINE
     Dosage: 15 MILLIGRAM, QD
     Route: 064
     Dates: start: 202306, end: 202404
  4. MIRTAZAPINE [Suspect]
     Active Substance: MIRTAZAPINE
     Dosage: 15 MILLIGRAM, QD
     Route: 064
     Dates: start: 202306, end: 202404
  5. MIRTAZAPINE [Suspect]
     Active Substance: MIRTAZAPINE
     Dosage: 15 MILLIGRAM, QD
     Dates: start: 202306, end: 202404
  6. MIRTAZAPINE [Suspect]
     Active Substance: MIRTAZAPINE
     Dosage: 15 MILLIGRAM, QD
     Dates: start: 202306, end: 202404
  7. MIRTAZAPINE [Suspect]
     Active Substance: MIRTAZAPINE
     Dosage: 15 MILLIGRAM, QD
     Route: 064
     Dates: start: 202306, end: 202404
  8. MIRTAZAPINE [Suspect]
     Active Substance: MIRTAZAPINE
     Dosage: 15 MILLIGRAM, QD
     Route: 064
     Dates: start: 202306, end: 202404
  9. BUPROPION [Suspect]
     Active Substance: BUPROPION
     Indication: Borderline personality disorder
     Dosage: 150 MILLIGRAM, QD
     Dates: start: 202306, end: 202404
  10. BUPROPION [Suspect]
     Active Substance: BUPROPION
     Dosage: 150 MILLIGRAM, QD
     Dates: start: 202306, end: 202404
  11. BUPROPION [Suspect]
     Active Substance: BUPROPION
     Dosage: 150 MILLIGRAM, QD
     Route: 064
     Dates: start: 202306, end: 202404
  12. BUPROPION [Suspect]
     Active Substance: BUPROPION
     Dosage: 150 MILLIGRAM, QD
     Route: 064
     Dates: start: 202306, end: 202404
  13. BUPROPION [Suspect]
     Active Substance: BUPROPION
     Dosage: 150 MILLIGRAM, QD
     Dates: start: 202306, end: 202404
  14. BUPROPION [Suspect]
     Active Substance: BUPROPION
     Dosage: 150 MILLIGRAM, QD
     Dates: start: 202306, end: 202404
  15. BUPROPION [Suspect]
     Active Substance: BUPROPION
     Dosage: 150 MILLIGRAM, QD
     Route: 064
     Dates: start: 202306, end: 202404
  16. BUPROPION [Suspect]
     Active Substance: BUPROPION
     Dosage: 150 MILLIGRAM, QD
     Route: 064
     Dates: start: 202306, end: 202404
  17. SERTRALINE [Suspect]
     Active Substance: SERTRALINE HYDROCHLORIDE
     Indication: Borderline personality disorder
     Dosage: 150 MILLIGRAM, QD
     Dates: start: 202306, end: 202404
  18. SERTRALINE [Suspect]
     Active Substance: SERTRALINE HYDROCHLORIDE
     Dosage: 150 MILLIGRAM, QD
     Dates: start: 202306, end: 202404
  19. SERTRALINE [Suspect]
     Active Substance: SERTRALINE HYDROCHLORIDE
     Dosage: 150 MILLIGRAM, QD
     Route: 064
     Dates: start: 202306, end: 202404
  20. SERTRALINE [Suspect]
     Active Substance: SERTRALINE HYDROCHLORIDE
     Dosage: 150 MILLIGRAM, QD
     Route: 064
     Dates: start: 202306, end: 202404
  21. SERTRALINE [Suspect]
     Active Substance: SERTRALINE HYDROCHLORIDE
     Dosage: 150 MILLIGRAM, QD
     Dates: start: 202306, end: 202404
  22. SERTRALINE [Suspect]
     Active Substance: SERTRALINE HYDROCHLORIDE
     Dosage: 150 MILLIGRAM, QD
     Dates: start: 202306, end: 202404
  23. SERTRALINE [Suspect]
     Active Substance: SERTRALINE HYDROCHLORIDE
     Dosage: 150 MILLIGRAM, QD
     Route: 064
     Dates: start: 202306, end: 202404
  24. SERTRALINE [Suspect]
     Active Substance: SERTRALINE HYDROCHLORIDE
     Dosage: 150 MILLIGRAM, QD
     Route: 064
     Dates: start: 202306, end: 202404
  25. LITHIUM [Suspect]
     Active Substance: LITHIUM
     Indication: Borderline personality disorder
     Dosage: 225 MILLIGRAM, QOD (DOSAGE INCREASED DURING PREGNANCY, AT LEAST UNTIL GW 4 ONLY 225 MG/D)
     Dates: start: 202306, end: 202404
  26. LITHIUM [Suspect]
     Active Substance: LITHIUM
     Dosage: 225 MILLIGRAM, QOD (DOSAGE INCREASED DURING PREGNANCY, AT LEAST UNTIL GW 4 ONLY 225 MG/D)
     Dates: start: 202306, end: 202404
  27. LITHIUM [Suspect]
     Active Substance: LITHIUM
     Dosage: 225 MILLIGRAM, QOD (DOSAGE INCREASED DURING PREGNANCY, AT LEAST UNTIL GW 4 ONLY 225 MG/D)
     Route: 064
     Dates: start: 202306, end: 202404
  28. LITHIUM [Suspect]
     Active Substance: LITHIUM
     Dosage: 225 MILLIGRAM, QOD (DOSAGE INCREASED DURING PREGNANCY, AT LEAST UNTIL GW 4 ONLY 225 MG/D)
     Route: 064
     Dates: start: 202306, end: 202404
  29. LITHIUM [Suspect]
     Active Substance: LITHIUM
     Dosage: 225 MILLIGRAM, QOD (DOSAGE INCREASED DURING PREGNANCY, AT LEAST UNTIL GW 4 ONLY 225 MG/D)
     Dates: start: 202306, end: 202404
  30. LITHIUM [Suspect]
     Active Substance: LITHIUM
     Dosage: 225 MILLIGRAM, QOD (DOSAGE INCREASED DURING PREGNANCY, AT LEAST UNTIL GW 4 ONLY 225 MG/D)
     Dates: start: 202306, end: 202404
  31. LITHIUM [Suspect]
     Active Substance: LITHIUM
     Dosage: 225 MILLIGRAM, QOD (DOSAGE INCREASED DURING PREGNANCY, AT LEAST UNTIL GW 4 ONLY 225 MG/D)
     Route: 064
     Dates: start: 202306, end: 202404
  32. LITHIUM [Suspect]
     Active Substance: LITHIUM
     Dosage: 225 MILLIGRAM, QOD (DOSAGE INCREASED DURING PREGNANCY, AT LEAST UNTIL GW 4 ONLY 225 MG/D)
     Route: 064
     Dates: start: 202306, end: 202404
  33. QUETIAPINE [Suspect]
     Active Substance: QUETIAPINE
     Indication: Borderline personality disorder
     Dosage: 25 MILLIGRAM, QD
     Dates: start: 202306, end: 202404
  34. QUETIAPINE [Suspect]
     Active Substance: QUETIAPINE
     Dosage: 25 MILLIGRAM, QD
     Dates: start: 202306, end: 202404
  35. QUETIAPINE [Suspect]
     Active Substance: QUETIAPINE
     Dosage: 25 MILLIGRAM, QD
     Route: 064
     Dates: start: 202306, end: 202404
  36. QUETIAPINE [Suspect]
     Active Substance: QUETIAPINE
     Dosage: 25 MILLIGRAM, QD
     Route: 064
     Dates: start: 202306, end: 202404
  37. QUETIAPINE [Suspect]
     Active Substance: QUETIAPINE
     Dosage: 25 MILLIGRAM, QD
     Dates: start: 202306, end: 202404
  38. QUETIAPINE [Suspect]
     Active Substance: QUETIAPINE
     Dosage: 25 MILLIGRAM, QD
     Dates: start: 202306, end: 202404
  39. QUETIAPINE [Suspect]
     Active Substance: QUETIAPINE
     Dosage: 25 MILLIGRAM, QD
     Route: 064
     Dates: start: 202306, end: 202404
  40. QUETIAPINE [Suspect]
     Active Substance: QUETIAPINE
     Dosage: 25 MILLIGRAM, QD
     Route: 064
     Dates: start: 202306, end: 202404
  41. FOLIC ACID [Concomitant]
     Active Substance: FOLIC ACID
     Indication: Prophylaxis of neural tube defect
     Dosage: UNK UNK, QD
     Dates: start: 202306, end: 202307
  42. FOLIC ACID [Concomitant]
     Active Substance: FOLIC ACID
     Dosage: UNK UNK, QD
     Dates: start: 202306, end: 202307
  43. FOLIC ACID [Concomitant]
     Active Substance: FOLIC ACID
     Dosage: UNK UNK, QD
     Route: 064
     Dates: start: 202306, end: 202307
  44. FOLIC ACID [Concomitant]
     Active Substance: FOLIC ACID
     Dosage: UNK UNK, QD
     Route: 064
     Dates: start: 202306, end: 202307
  45. FOLIC ACID [Concomitant]
     Active Substance: FOLIC ACID
     Dosage: UNK UNK, QD
     Dates: start: 202306, end: 202307
  46. FOLIC ACID [Concomitant]
     Active Substance: FOLIC ACID
     Dosage: UNK UNK, QD
     Dates: start: 202306, end: 202307
  47. FOLIC ACID [Concomitant]
     Active Substance: FOLIC ACID
     Dosage: UNK UNK, QD
     Route: 064
     Dates: start: 202306, end: 202307
  48. FOLIC ACID [Concomitant]
     Active Substance: FOLIC ACID
     Dosage: UNK UNK, QD
     Route: 064
     Dates: start: 202306, end: 202307
  49. INSULIN NOS [Concomitant]
     Active Substance: INSULIN NOS
     Indication: Gestational diabetes
  50. INSULIN NOS [Concomitant]
     Active Substance: INSULIN NOS
  51. INSULIN NOS [Concomitant]
     Active Substance: INSULIN NOS
     Route: 064
  52. INSULIN NOS [Concomitant]
     Active Substance: INSULIN NOS
     Route: 064
  53. INSULIN NOS [Concomitant]
     Active Substance: INSULIN NOS
  54. INSULIN NOS [Concomitant]
     Active Substance: INSULIN NOS
  55. INSULIN NOS [Concomitant]
     Active Substance: INSULIN NOS
     Route: 064
  56. INSULIN NOS [Concomitant]
     Active Substance: INSULIN NOS
     Route: 064
  57. LEVOTHYROXINE SODIUM [Concomitant]
     Active Substance: LEVOTHYROXINE SODIUM
     Indication: Hypothyroidism
     Dosage: 175 MICROGRAM, QD (150-175 ?G/D)
     Dates: start: 202306, end: 202404
  58. LEVOTHYROXINE SODIUM [Concomitant]
     Active Substance: LEVOTHYROXINE SODIUM
     Dosage: 175 MICROGRAM, QD (150-175 ?G/D)
     Dates: start: 202306, end: 202404
  59. LEVOTHYROXINE SODIUM [Concomitant]
     Active Substance: LEVOTHYROXINE SODIUM
     Dosage: 175 MICROGRAM, QD (150-175 ?G/D)
     Route: 064
     Dates: start: 202306, end: 202404
  60. LEVOTHYROXINE SODIUM [Concomitant]
     Active Substance: LEVOTHYROXINE SODIUM
     Dosage: 175 MICROGRAM, QD (150-175 ?G/D)
     Route: 064
     Dates: start: 202306, end: 202404
  61. LEVOTHYROXINE SODIUM [Concomitant]
     Active Substance: LEVOTHYROXINE SODIUM
     Dosage: 175 MICROGRAM, QD (150-175 ?G/D)
     Dates: start: 202306, end: 202404
  62. LEVOTHYROXINE SODIUM [Concomitant]
     Active Substance: LEVOTHYROXINE SODIUM
     Dosage: 175 MICROGRAM, QD (150-175 ?G/D)
     Dates: start: 202306, end: 202404
  63. LEVOTHYROXINE SODIUM [Concomitant]
     Active Substance: LEVOTHYROXINE SODIUM
     Dosage: 175 MICROGRAM, QD (150-175 ?G/D)
     Route: 064
     Dates: start: 202306, end: 202404
  64. LEVOTHYROXINE SODIUM [Concomitant]
     Active Substance: LEVOTHYROXINE SODIUM
     Dosage: 175 MICROGRAM, QD (150-175 ?G/D)
     Route: 064
     Dates: start: 202306, end: 202404

REACTIONS (5)
  - Drug withdrawal syndrome neonatal [Recovered/Resolved]
  - Agitation neonatal [Recovered/Resolved]
  - Temperature regulation disorder [Recovered/Resolved]
  - Neonatal tachypnoea [Recovered/Resolved]
  - Foetal exposure during pregnancy [Unknown]

NARRATIVE: CASE EVENT DATE: 20240401
